FAERS Safety Report 12500416 (Version 1)
Quarter: 2016Q2

REPORT INFORMATION
  Report Type: Spontaneous
  Country: US (occurrence: US)
  Receive Date: 20160627
  Receipt Date: 20160627
  Transmission Date: 20160815
  Serious: No
  Sender: FDA-Public Use
  Company Number: US-PFIZER INC-2016309953

PATIENT
  Age: 35 Year
  Sex: Female
  Weight: 52.16 kg

DRUGS (10)
  1. METOPROLOL. [Concomitant]
     Active Substance: METOPROLOL
     Indication: ANTICOAGULANT THERAPY
  2. CLOPIDOGREL [Concomitant]
     Active Substance: CLOPIDOGREL BISULFATE
     Indication: BLOOD PRESSURE ABNORMAL
     Dosage: 75 MG, ONE TIME A DAY, PILL
     Route: 048
  3. VORICONAZOLE. [Suspect]
     Active Substance: VORICONAZOLE
     Indication: FUNGAL ENDOCARDITIS
     Dosage: UNK
     Route: 042
     Dates: start: 201604
  4. CLOPIDOGREL [Concomitant]
     Active Substance: CLOPIDOGREL BISULFATE
     Indication: ANTICOAGULANT THERAPY
  5. VFEND [Suspect]
     Active Substance: VORICONAZOLE
     Dosage: 600 MG, DAILY
     Dates: start: 2016
  6. VFEND [Suspect]
     Active Substance: VORICONAZOLE
     Dosage: 400 MG, DAILY
     Dates: start: 2016
  7. GABAPENTIN. [Concomitant]
     Active Substance: GABAPENTIN
     Indication: NEUROPATHY PERIPHERAL
     Dosage: 300 MG, THREE TIMES A DAY
     Route: 048
  8. ASPIRIN. [Concomitant]
     Active Substance: ASPIRIN
     Indication: ANTICOAGULANT THERAPY
     Dosage: 81 MG, ONCE A DAY
     Route: 048
  9. METOPROLOL. [Concomitant]
     Active Substance: METOPROLOL
     Indication: BLOOD PRESSURE ABNORMAL
     Dosage: 25 MG, HALF A TABLET TWICE A DAY
     Route: 048
  10. VFEND [Suspect]
     Active Substance: VORICONAZOLE
     Indication: FUNGAL ENDOCARDITIS
     Dosage: 50 MG TABLET, FIVE AT A TIME (250 MG TWICE A DAY)
     Dates: start: 20160422

REACTIONS (5)
  - Visual impairment [Recovering/Resolving]
  - Fatigue [Not Recovered/Not Resolved]
  - Amnesia [Recovering/Resolving]
  - Somnolence [Recovering/Resolving]
  - Dizziness [Recovering/Resolving]
